FAERS Safety Report 10664504 (Version 1)
Quarter: 2014Q4

REPORT INFORMATION
  Report Type: Spontaneous
  Country: ES (occurrence: ES)
  Receive Date: 20141219
  Receipt Date: 20141219
  Transmission Date: 20150529
  Serious: Yes (Death, Hospitalization)
  Sender: FDA-Public Use
  Company Number: ES-ASTRAZENECA-2014SE95940

PATIENT
  Age: 34 Year
  Sex: Male

DRUGS (8)
  1. VALPROIC ACID. [Interacting]
     Active Substance: VALPROIC ACID
     Indication: JUVENILE MYOCLONIC EPILEPSY
     Dosage: 2 MG/KG/H
     Route: 065
  2. GENTAMICIN. [Concomitant]
     Active Substance: GENTAMICIN
     Indication: ANAESTHETIC COMPLICATION PULMONARY
  3. CLINDAMYCIN [Concomitant]
     Active Substance: CLINDAMYCIN\CLINDAMYCIN PHOSPHATE
     Indication: ANAESTHETIC COMPLICATION PULMONARY
  4. MEROPENEM. [Suspect]
     Active Substance: MEROPENEM
     Dosage: WITH AN EXTENDED-INFUSION OVER 3 HOURS
     Route: 042
  5. AMIKACIN [Concomitant]
     Active Substance: AMIKACIN
  6. VALPROIC ACID. [Interacting]
     Active Substance: VALPROIC ACID
     Indication: JUVENILE MYOCLONIC EPILEPSY
     Route: 048
  7. VALPROIC ACID. [Interacting]
     Active Substance: VALPROIC ACID
     Indication: JUVENILE MYOCLONIC EPILEPSY
     Dosage: 0.6 MG/KG/H
     Route: 065
  8. VANCOMYCIN [Concomitant]
     Active Substance: VANCOMYCIN

REACTIONS (4)
  - Partial seizures [Unknown]
  - Drug interaction [Unknown]
  - Generalised tonic-clonic seizure [Unknown]
  - Febrile convulsion [Fatal]
